FAERS Safety Report 4383738-4 (Version None)
Quarter: 2004Q2

REPORT INFORMATION
  Report Type: 
  Country: None (occurrence: None)
  Receive Date: 20040608
  Receipt Date: 20030814
  Transmission Date: 20050107
  Serious: Yes (Hospitalization)
  Sender: FDA-Public Use
  Company Number: 200312526BCC

PATIENT
  Age: 29 Year
  Sex: Male
  Weight: 129.7287 kg

DRUGS (2)
  1. ALEVE [Suspect]
     Dosage: ORAL
     Route: 048
     Dates: start: 20010101
  2. TUMS [Concomitant]

REACTIONS (3)
  - DIARRHOEA [None]
  - RENAL FAILURE ACUTE [None]
  - TOXIC EPIDERMAL NECROLYSIS [None]
